FAERS Safety Report 5534177-1 (Version None)
Quarter: 2007Q4

REPORT INFORMATION
  Report Type: 
  Country: None (occurrence: None)
  Receive Date: 20071205
  Receipt Date: 20071126
  Transmission Date: 20080405
  Serious: Yes (Hospitalization)
  Sender: FDA-Public Use
  Company Number: JP-SP-2007-04039

PATIENT
  Age: 43 Year
  Sex: Male

DRUGS (4)
  1. IMMUCYST [Suspect]
     Indication: BLADDER CANCER
     Route: 043
     Dates: start: 20070927, end: 20071102
  2. IMMUCYST [Suspect]
     Route: 043
     Dates: start: 20070927, end: 20071102
  3. CEFDINIR [Concomitant]
     Dates: start: 20070907, end: 20070913
  4. CEFBUPERAZONE SODIUM [Concomitant]
     Dates: start: 20070904, end: 20070906

REACTIONS (2)
  - PAROTID GLAND ENLARGEMENT [None]
  - POLLAKIURIA [None]
